FAERS Safety Report 5808952-X (Version None)
Quarter: 2008Q3

REPORT INFORMATION
  Report Type: 
  Country: None (occurrence: None)
  Receive Date: 20080714
  Receipt Date: 20080624
  Transmission Date: 20090109
  Serious: Yes (Death, Hospitalization)
  Sender: FDA-Public Use
  Company Number: US-ROCHE-499034

PATIENT
  Sex: Male
  Weight: 87.5 kg

DRUGS (21)
  1. MYCOPHENOLATE MOFETIL [Suspect]
     Indication: DRUG USE FOR UNKNOWN INDICATION
     Route: 065
     Dates: start: 20070228, end: 20070325
  2. GANCICLOVIR SODIUM [Suspect]
     Indication: DRUG USE FOR UNKNOWN INDICATION
     Route: 065
     Dates: start: 20070321, end: 20070325
  3. ENBREL [Suspect]
     Indication: LUNG DISORDER
     Route: 065
     Dates: start: 20070306, end: 20070320
  4. METHYLPREDNISOLONE [Suspect]
     Indication: DRUG USE FOR UNKNOWN INDICATION
     Route: 065
     Dates: start: 20070321, end: 20070325
  5. CITALOPRAM HYDROBROMIDE [Suspect]
     Indication: DRUG USE FOR UNKNOWN INDICATION
     Route: 065
     Dates: start: 20070226, end: 20070324
  6. PANTOPRAZOLE SODIUM [Concomitant]
     Dates: start: 20070323, end: 20070325
  7. FLUTICASONE/SALMETEROL [Concomitant]
     Dates: start: 20070226, end: 20070325
  8. TIOTROPIUM BROMIDE [Concomitant]
     Dates: start: 20070227, end: 20070325
  9. MONTELUKAST SODIUM [Concomitant]
     Dates: start: 20070226, end: 20070325
  10. MORPHINE [Concomitant]
     Dates: start: 20070324, end: 20070325
  11. ATOVAQUONE [Concomitant]
     Dates: start: 20070321, end: 20070324
  12. CALCIUM ACETATE [Concomitant]
     Dates: start: 20070316, end: 20070324
  13. INSULIN GLARGINE [Concomitant]
     Dates: start: 20070321, end: 20070324
  14. ACETAMINOPHEN [Concomitant]
     Dates: start: 20070321, end: 20070324
  15. DEXTROSE IN WATER [Concomitant]
     Dosage: DRUG REPORTED AS ^DEXTROSE 50% IN WATER^.
     Dates: start: 20070226, end: 20070324
  16. DIPHENHYDRAMINE HYDROCHLORIDE [Concomitant]
     Dates: start: 20070324, end: 20070324
  17. VANCOMYCIN HCL [Concomitant]
     Dates: start: 20070321, end: 20070323
  18. MEROPENEM [Concomitant]
     Dates: start: 20070323, end: 20070325
  19. VORICONAZOLE [Concomitant]
     Dates: start: 20070301, end: 20070325
  20. INSULIN ASPART [Concomitant]
     Dates: start: 20070226
  21. OXYCODONE HCL [Concomitant]
     Dates: start: 20070226, end: 20070324

REACTIONS (2)
  - RENAL FAILURE [None]
  - RESPIRATORY FAILURE [None]
